FAERS Safety Report 9719069 (Version 3)
Quarter: 2014Q1

REPORT INFORMATION
  Report Type: Spontaneous
  Country: US (occurrence: US)
  Receive Date: 20131127
  Receipt Date: 20140115
  Transmission Date: 20141002
  Serious: Yes (Hospitalization, Disabling, Other)
  Sender: FDA-Public Use
  Company Number: US-ACORDA-ACO_38017_2013

PATIENT
  Age: 66 Year
  Sex: Female
  Weight: 61.22 kg

DRUGS (22)
  1. AMPYRA [Suspect]
     Indication: GAIT DISTURBANCE
     Dosage: 10 MG, QD
     Route: 048
     Dates: start: 201112
  2. TECFIDERA [Suspect]
     Indication: PRODUCT USED FOR UNKNOWN INDICATION
     Dosage: UNK
     Route: 065
     Dates: start: 2013
  3. DETROL [Concomitant]
     Indication: PRODUCT USED FOR UNKNOWN INDICATION
     Dosage: 1 MG, UNK
  4. DETROL [Concomitant]
     Dosage: 4 MG, QD
     Route: 048
  5. EFFEXOR [Concomitant]
     Indication: PRODUCT USED FOR UNKNOWN INDICATION
     Dosage: 150 MG, UNK
  6. EFFEXOR [Concomitant]
     Dosage: 37.5 MG, QD
     Route: 048
  7. MULTIVITAMINS [Concomitant]
     Indication: PRODUCT USED FOR UNKNOWN INDICATION
     Dosage: UNK
     Route: 048
  8. TYLENOL 8 HOUR [Concomitant]
     Indication: PRODUCT USED FOR UNKNOWN INDICATION
     Dosage: 650 MG, Q 6 HOURS PRN
     Route: 048
  9. MILK OF MAGNESIA [Concomitant]
     Indication: PRODUCT USED FOR UNKNOWN INDICATION
     Dosage: 311 MG, UNK
  10. DOCUSATE SODIUM [Concomitant]
     Indication: PRODUCT USED FOR UNKNOWN INDICATION
     Dosage: 250 MG, QD, PRN
     Route: 048
  11. OMEGA 3 [Concomitant]
     Indication: PRODUCT USED FOR UNKNOWN INDICATION
     Dosage: 1000 MG, UNK
     Route: 048
  12. JUVEN [Concomitant]
     Indication: PRODUCT USED FOR UNKNOWN INDICATION
  13. NIACIN [Concomitant]
     Indication: PRODUCT USED FOR UNKNOWN INDICATION
     Dosage: 400 MG, UNK
  14. NIACIN [Concomitant]
     Dosage: 250 MG, QD
     Route: 048
  15. MIRABEGRON [Concomitant]
     Indication: PRODUCT USED FOR UNKNOWN INDICATION
     Dosage: 25 MG, BID
     Route: 048
  16. LIORESAL [Concomitant]
     Indication: PRODUCT USED FOR UNKNOWN INDICATION
     Dosage: 10 MG, TID
     Route: 048
  17. IMODIUM A-D [Concomitant]
     Indication: PRODUCT USED FOR UNKNOWN INDICATION
     Route: 048
  18. ENULOSE [Concomitant]
     Indication: PRODUCT USED FOR UNKNOWN INDICATION
     Dosage: 30 G, BID, PRN
     Route: 048
  19. BISCODYL [Concomitant]
     Indication: PRODUCT USED FOR UNKNOWN INDICATION
     Dosage: 5 MG,(2 TABS) TID
     Route: 048
  20. ECOTRIN [Concomitant]
     Indication: PRODUCT USED FOR UNKNOWN INDICATION
     Dosage: 81 MG, QD
     Route: 048
  21. VITAMIN D3 [Concomitant]
     Indication: PRODUCT USED FOR UNKNOWN INDICATION
     Dosage: 2000 IU, UNK
     Route: 048
  22. RITALIN [Concomitant]
     Indication: PRODUCT USED FOR UNKNOWN INDICATION
     Dosage: 10 MG, QD WITH BREAKFAST
     Route: 048

REACTIONS (25)
  - Rhabdomyolysis [Unknown]
  - Muscle spasms [Recovered/Resolved]
  - Muscle disorder [Recovered/Resolved]
  - Fall [Recovered/Resolved]
  - Movement disorder [Recovered/Resolved]
  - Pharyngeal oedema [Recovered/Resolved]
  - Swollen tongue [Recovered/Resolved]
  - Lip swelling [Recovered/Resolved]
  - Loss of consciousness [Unknown]
  - Concussion [Unknown]
  - Disability [Unknown]
  - Venous insufficiency [Unknown]
  - Renal failure chronic [Unknown]
  - Paraparesis [Unknown]
  - Pulse absent [Recovered/Resolved]
  - Vertigo [Unknown]
  - Exposure to toxic agent [Unknown]
  - Muscle spasticity [Unknown]
  - Depression [Unknown]
  - Skin discolouration [Recovered/Resolved]
  - Hemiparesis [Not Recovered/Not Resolved]
  - Myalgia [Recovering/Resolving]
  - Dry mouth [Not Recovered/Not Resolved]
  - Constipation [Unknown]
  - Adverse drug reaction [Recovered/Resolved]
